FAERS Safety Report 9716482 (Version 1)
Quarter: 2013Q4

REPORT INFORMATION
  Report Type: Spontaneous
  Country: US (occurrence: None)
  Receive Date: 20131126
  Receipt Date: 20131126
  Transmission Date: 20140711
  Serious: Yes (Hospitalization)
  Sender: FDA-Public Use
  Company Number: None

PATIENT
  Age: 79 Year
  Sex: Male
  Weight: 83 kg

DRUGS (5)
  1. ANGIOMAX [Suspect]
     Indication: ANGIOGRAM
     Route: 042
     Dates: start: 20131120
  2. CLOPIDOGREL [Concomitant]
  3. ROSUVASTATIN [Concomitant]
  4. INSULIN GLARGINE [Concomitant]
  5. DABIGRATRAN [Concomitant]

REACTIONS (1)
  - Thrombosis in device [None]
